FAERS Safety Report 6887267-5 (Version None)
Quarter: 2010Q3

REPORT INFORMATION
  Report Type: 
  Country: None (occurrence: None)
  Receive Date: 20100727
  Receipt Date: 20100716
  Transmission Date: 20110219
  Serious: Yes (Hospitalization, Other)
  Sender: FDA-Public Use
  Company Number: FABR-1001011

PATIENT
  Age: 36 Year
  Sex: Male
  Weight: 86 kg

DRUGS (8)
  1. FABRAZYME [Suspect]
     Indication: FABRY'S DISEASE
     Dosage: 70 MG, Q2W, INTRAVENOUS
     Route: 042
     Dates: start: 20030101
  2. TEGRETOL [Concomitant]
  3. PERSANTIN [Concomitant]
  4. ETALPHA (ALFACALCIDOL) [Concomitant]
  5. RENAGEL [Concomitant]
  6. NATRIUMBIKARBONAT (SODIUM BICARBONATE) [Concomitant]
  7. ALLOPURINOL [Concomitant]
  8. ALBYL (ACETYLSALICYLIC ACID) [Concomitant]

REACTIONS (2)
  - RENAL FAILURE CHRONIC [None]
  - RENAL TRANSPLANT [None]
